FAERS Safety Report 18729466 (Version 1)
Quarter: 2021Q1

REPORT INFORMATION
  Report Type: Spontaneous
  Country: US (occurrence: US)
  Receive Date: 20210111
  Receipt Date: 20210111
  Transmission Date: 20210419
  Serious: Yes (Death)
  Sender: FDA-Public Use
  Company Number: None

PATIENT
  Age: 77 Year
  Sex: Male

DRUGS (2)
  1. VYNDAMAX [Suspect]
     Active Substance: TAFAMIDIS
     Indication: AMYLOIDOSIS
     Route: 048
     Dates: start: 20160609, end: 20210101
  2. MIDODRINE [Concomitant]
     Active Substance: MIDODRINE

REACTIONS (1)
  - Death [None]

NARRATIVE: CASE EVENT DATE: 20210101
